FAERS Safety Report 6700924-6 (Version None)
Quarter: 2010Q2

REPORT INFORMATION
  Report Type: 
  Country: None (occurrence: None)
  Receive Date: 20100428
  Receipt Date: 20100416
  Transmission Date: 20101027
  Serious: Yes (Hospitalization)
  Sender: FDA-Public Use
  Company Number: GB-WYE-H14728510

PATIENT
  Age: 72 Year
  Sex: Female

DRUGS (7)
  1. PANTOPRAZOLE [Suspect]
     Indication: GASTROOESOPHAGEAL REFLUX DISEASE
  2. MAGNESIUM [Concomitant]
     Dosage: UNKNOWN
     Route: 042
  3. MAGNESIUM [Concomitant]
     Dosage: UNKNOWN
     Route: 048
  4. RANITIDINE [Concomitant]
     Indication: GASTROOESOPHAGEAL REFLUX DISEASE
     Dosage: UNKNOWN
  5. ERGOCALCIFEROL [Concomitant]
     Dosage: UNKNOWN
     Route: 048
  6. ESOMEPRAZOLE [Suspect]
     Indication: GASTROOESOPHAGEAL REFLUX DISEASE
     Dosage: UNKNOWN
  7. BENDROFLUMETHIAZIDE [Concomitant]
     Indication: GRAVITATIONAL OEDEMA

REACTIONS (2)
  - HYPOCALCAEMIA [None]
  - HYPOMAGNESAEMIA [None]
